FAERS Safety Report 6397055-4 (Version None)
Quarter: 2009Q4

REPORT INFORMATION
  Report Type: 
  Country: None (occurrence: None)
  Receive Date: 20091012
  Receipt Date: 20091001
  Transmission Date: 20100525
  Serious: Yes (Hospitalization)
  Sender: FDA-Public Use
  Company Number: JP-JNJFOC-20091002443

PATIENT
  Age: 69 Year
  Sex: Female
  Weight: 61 kg

DRUGS (7)
  1. DOXORUBICIN HCL [Suspect]
     Indication: OVARIAN CANCER RECURRENT
     Route: 042
     Dates: start: 20090722, end: 20090722
  2. BENIDIPINE HYDROCHLORIDE [Concomitant]
     Route: 048
  3. AZUNOL [Concomitant]
     Indication: PROPHYLAXIS
     Route: 002
  4. LACTOMIN [Concomitant]
     Indication: PROPHYLAXIS
     Route: 048
  5. LEVOFLOXACIN [Concomitant]
     Indication: CYSTITIS
     Route: 048
  6. NARTOGRASTIM [Concomitant]
  7. GABEXATE MESILATE [Concomitant]
     Indication: DISSEMINATED INTRAVASCULAR COAGULATION
     Route: 042

REACTIONS (2)
  - DISSEMINATED INTRAVASCULAR COAGULATION [None]
  - HEPATIC FUNCTION ABNORMAL [None]
